FAERS Safety Report 6665623-8 (Version None)
Quarter: 2010Q2

REPORT INFORMATION
  Report Type: 
  Country: None (occurrence: None)
  Receive Date: 20100402
  Receipt Date: 20100329
  Transmission Date: 20101027
  Serious: Yes (Hospitalization, Other)
  Sender: FDA-Public Use
  Company Number: US-ELI_LILLY_AND_COMPANY-US201003008229

PATIENT
  Sex: Female

DRUGS (12)
  1. HUMULIN 70/30 [Suspect]
     Indication: TYPE 2 DIABETES MELLITUS
     Dosage: 24 U, EACH MORNING
  2. HUMULIN 70/30 [Suspect]
     Dosage: 12 U, EACH EVENING
  3. HUMULIN 70/30 [Suspect]
     Dosage: 24 U, EACH MORNING
  4. HUMULIN 70/30 [Suspect]
     Dosage: 12 U, EACH EVENING
  5. THYROXINE [Concomitant]
     Dosage: 75 D/F, UNK
  6. LIPITOR [Concomitant]
     Dosage: 10 MG, UNK
  7. FEMARA [Concomitant]
     Dosage: 2.5 MG, UNK
  8. AMARYL [Concomitant]
     Dosage: UNK, AS NEEDED
  9. COUMADIN [Concomitant]
     Dosage: 2.5 MG, UNK
  10. DIOVAN [Concomitant]
  11. TOPROL-XL [Concomitant]
  12. LANOXIN [Concomitant]

REACTIONS (7)
  - BLINDNESS UNILATERAL [None]
  - BLOOD GLUCOSE INCREASED [None]
  - BREAST CANCER [None]
  - CARDIAC PACEMAKER INSERTION [None]
  - CORONARY ARTERY BYPASS [None]
  - INCORRECT DOSE ADMINISTERED [None]
  - VISUAL ACUITY REDUCED [None]
